FAERS Safety Report 10489335 (Version 1)
Quarter: 2014Q4

REPORT INFORMATION
  Report Type: Spontaneous
  Country: US (occurrence: US)
  Receive Date: 20141002
  Receipt Date: 20141002
  Transmission Date: 20150528
  Serious: No
  Sender: FDA-Public Use
  Company Number: US-UPSHER-SMITH LABORATORIES, INC.-14001229

PATIENT
  Age: 58 Year
  Sex: Male

DRUGS (9)
  1. FORTICAL [Suspect]
     Active Substance: CALCITONIN SALMON
     Indication: OSTEOPENIA
     Dosage: 200 IU, QD
     Route: 045
     Dates: start: 201310, end: 201404
  2. VITAMIN B12 [Concomitant]
     Active Substance: CYANOCOBALAMIN
     Dosage: UNK
  3. FOLIC ACID. [Concomitant]
     Active Substance: FOLIC ACID
     Dosage: UNK
  4. ANTIHISTAMINES [Concomitant]
     Active Substance: ANTIHISTAMINES NOS
     Indication: ALLERGY TO ANIMAL
     Dosage: UNK, PRN
  5. RANITIDINE [Concomitant]
     Active Substance: RANITIDINE\RANITIDINE HYDROCHLORIDE
     Indication: GASTROOESOPHAGEAL REFLUX DISEASE
     Dosage: UNK
  6. THYROID [Concomitant]
     Active Substance: LEVOTHYROXINE\LIOTHYRONINE
     Indication: HYPOTHYROIDISM
     Dosage: UNK
  7. ASPIRIN. [Concomitant]
     Active Substance: ASPIRIN
     Indication: ARTHRITIS
     Dosage: UNK
  8. MAGNESIUM [Concomitant]
     Active Substance: MAGNESIUM
     Dosage: UNK
  9. CALCIUM [Concomitant]
     Active Substance: CALCIUM
     Dosage: UNK

REACTIONS (4)
  - Nasal discomfort [Recovered/Resolved]
  - Rhinorrhoea [Recovering/Resolving]
  - Epistaxis [Recovered/Resolved]
  - Nasal mucosal disorder [Recovered/Resolved]

NARRATIVE: CASE EVENT DATE: 201310
